FAERS Safety Report 5889254-2 (Version None)
Quarter: 2008Q3

REPORT INFORMATION
  Report Type: 
  Country: None (occurrence: None)
  Receive Date: 20080919
  Receipt Date: 20080915
  Transmission Date: 20090109
  Serious: Yes (Hospitalization)
  Sender: FDA-Public Use
  Company Number: GB-ROCHE-581039

PATIENT
  Sex: Male
  Weight: 108.8 kg

DRUGS (5)
  1. ORLISTAT [Suspect]
     Indication: OBESITY
     Route: 048
     Dates: start: 20080228
  2. BISOPROLOL FUMARATE [Concomitant]
     Route: 048
     Dates: start: 20080228
  3. EZETIMIBE [Concomitant]
     Route: 048
     Dates: start: 20050906
  4. PERINDOPRIL ERBUMINE [Concomitant]
     Indication: HYPERTENSION
     Route: 048
     Dates: start: 20031229
  5. SIMVASTATIN [Concomitant]
     Route: 048
     Dates: start: 20040127

REACTIONS (4)
  - ABDOMINAL PAIN [None]
  - CHEST PAIN [None]
  - DYSPNOEA [None]
  - GASTRIC INFECTION [None]
